FAERS Safety Report 10233864 (Version 5)
Quarter: 2019Q4

REPORT INFORMATION
  Report Type: Report from Study
  Country: US (occurrence: US)
  Receive Date: 20140612
  Receipt Date: 20191206
  Transmission Date: 20200122
  Serious: Yes (Other)
  Sender: FDA-Public Use
  Company Number: US-SA-2013SA136260

PATIENT
  Age: 50 Year
  Sex: Male
  Weight: 83.45 kg

DRUGS (9)
  1. TERIFLUNOMIDE. [Suspect]
     Active Substance: TERIFLUNOMIDE
     Dosage: 1 DF
     Route: 048
     Dates: start: 20131126
  2. TERIFLUNOMIDE. [Suspect]
     Active Substance: TERIFLUNOMIDE
     Dosage: 14 MG,QD
     Route: 048
     Dates: start: 20140304
  3. BENADRYL [Concomitant]
     Active Substance: DIPHENHYDRAMINE HYDROCHLORIDE
     Indication: HYPERSENSITIVITY
     Dosage: 25 MG,UNK
  4. AVONEX [Concomitant]
     Active Substance: INTERFERON BETA-1A
     Dosage: UNK UNK,UNK
     Route: 065
     Dates: start: 200801, end: 201311
  5. COLLAGEN [Concomitant]
     Active Substance: COLLAGEN
     Dosage: 500 MG,UNK
  6. CYANOCOBALAMIN. [Concomitant]
     Active Substance: CYANOCOBALAMIN
     Dosage: DOSE: 1000 MCG/5 L
  7. TERIFLUNOMIDE. [Suspect]
     Active Substance: TERIFLUNOMIDE
     Indication: MULTIPLE SCLEROSIS
     Dosage: 7 MG,QD
     Route: 048
     Dates: start: 20131109
  8. TERIFLUNOMIDE. [Suspect]
     Active Substance: TERIFLUNOMIDE
     Dosage: 7 MG,QD
     Route: 048
  9. ZOLOFT [Concomitant]
     Active Substance: SERTRALINE HYDROCHLORIDE
     Dosage: 25 MG,QD

REACTIONS (13)
  - Pain in extremity [Unknown]
  - Multiple sclerosis relapse [Recovering/Resolving]
  - Faeces soft [Unknown]
  - Constipation [Unknown]
  - Abdominal pain upper [Unknown]
  - Pruritus [Unknown]
  - Depression [Not Recovered/Not Resolved]
  - Product dose omission [Recovering/Resolving]
  - Back pain [Unknown]
  - Genital blister [Unknown]
  - Flatulence [Unknown]
  - Hydrocele operation [Unknown]
  - Dry skin [Unknown]

NARRATIVE: CASE EVENT DATE: 2019
